FAERS Safety Report 15285289 (Version 15)
Quarter: 2019Q3

REPORT INFORMATION
  Report Type: Spontaneous
  Country: CA (occurrence: CA)
  Receive Date: 20180816
  Receipt Date: 20190905
  Transmission Date: 20191004
  Serious: Yes (Hospitalization, Other)
  Sender: FDA-Public Use
  Company Number: CA-CELLTRION INC.-2018CA017951

PATIENT

DRUGS (12)
  1. INFLECTRA [Suspect]
     Active Substance: INFLIXIMAB-DYYB
     Dosage: 415 MG (EVERY 0, 2,6 WEEKS, THEN EVERY 8 WEEKS)
     Route: 042
     Dates: start: 20180201
  2. INFLECTRA [Suspect]
     Active Substance: INFLIXIMAB-DYYB
     Dosage: 5 MG/KG, 0,2,6, 12 WEEKS, THEN EVERY 8 WEEKS
     Route: 042
     Dates: start: 20180919
  3. INFLECTRA [Suspect]
     Active Substance: INFLIXIMAB-DYYB
     Dosage: 5 MG/KG, 0, 2, 6, 12 WEEKS, THEN EVERY 8 WEEKS
     Route: 042
     Dates: start: 20190102
  4. INFLECTRA [Suspect]
     Active Substance: INFLIXIMAB-DYYB
     Dosage: 5 MG/KG, 0, 2, 6, 12 WEEKS, THEN EVERY 8 WEEKS
     Route: 042
     Dates: start: 20190516
  5. INFLECTRA [Suspect]
     Active Substance: INFLIXIMAB-DYYB
     Dosage: UNK
     Route: 042
     Dates: start: 20190823
  6. INFLECTRA [Suspect]
     Active Substance: INFLIXIMAB-DYYB
     Dosage: 5 MG/KG, 0, 2, 6, 12 WEEKS, THEN EVERY 8 WEEKS
     Route: 042
     Dates: start: 20181101
  7. INFLECTRA [Suspect]
     Active Substance: INFLIXIMAB-DYYB
     Dosage: 5 MG/KG, 0, 2, 6, 12 WEEKS, THEN EVERY 8 WEEKS
     Route: 042
     Dates: start: 20190214
  8. INFLECTRA [Suspect]
     Active Substance: INFLIXIMAB-DYYB
     Dosage: 415 MG, EVERY 0, 2, 6, 12 WEEKS, THEN EVERY 8 WEEKS
     Route: 042
     Dates: start: 20180822
  9. INFLECTRA [Suspect]
     Active Substance: INFLIXIMAB-DYYB
     Indication: CROHN^S DISEASE
     Dosage: 415 MG, EVERY 0, 2,6 WEEKS, THEN EVERY 8 WEEKS
     Route: 042
     Dates: start: 20170526
  10. INFLECTRA [Suspect]
     Active Substance: INFLIXIMAB-DYYB
     Dosage: 5 MG/KG, 0, 2, 6, 12 WEEKS, THEN EVERY 8 WEEKS
     Route: 042
     Dates: start: 20190626
  11. METHOTREXATE. [Concomitant]
     Active Substance: METHOTREXATE
     Dosage: 7.5 MG, 1X/DAY
     Route: 048
     Dates: start: 201705
  12. INFLECTRA [Suspect]
     Active Substance: INFLIXIMAB-DYYB
     Dosage: 415 MG, (EVERY 0, 2, 6, 12 WEEKS, THEN EVERY 8 WEEKS)
     Route: 042
     Dates: start: 20180809

REACTIONS (14)
  - Abscess [Unknown]
  - Pain [Unknown]
  - Heart rate abnormal [Recovered/Resolved]
  - Body temperature fluctuation [Recovered/Resolved]
  - Off label use [Unknown]
  - Blood pressure fluctuation [Recovered/Resolved]
  - Fatigue [Unknown]
  - Anal fistula [Recovering/Resolving]
  - Blood pressure increased [Unknown]
  - Weight increased [Not Recovered/Not Resolved]
  - Muscle spasms [Unknown]
  - Insomnia [Unknown]
  - Incorrect dose administered [Unknown]
  - Abdominal pain [Unknown]

NARRATIVE: CASE EVENT DATE: 20170526
